FAERS Safety Report 6267578-7 (Version None)
Quarter: 2009Q3

REPORT INFORMATION
  Report Type: 
  Country: None (occurrence: None)
  Receive Date: 20090714
  Receipt Date: 20090706
  Transmission Date: 20100115
  Serious: Yes (Other)
  Sender: FDA-Public Use
  Company Number: US-JNJCH-2009018398

PATIENT
  Age: 62 Year
  Sex: Female
  Weight: 70.3 kg

DRUGS (3)
  1. BENADRYL [Suspect]
     Indication: HYPERSENSITIVITY
     Dosage: TEXT:1 KAPSEAL ONCE A DAY
     Route: 048
  2. PREDNISONE TAB [Concomitant]
     Indication: RHEUMATOID ARTHRITIS
     Dosage: TEXT:5 MG TWO TIMES A WEEK
     Route: 065
  3. DARVOCET [Concomitant]
     Indication: INTERVERTEBRAL DISC PROTRUSION
     Dosage: TEXT:^N100^ AS NEEDED
     Route: 065

REACTIONS (1)
  - HYPERSENSITIVITY [None]
